FAERS Safety Report 24365903 (Version 1)
Quarter: 2024Q3

REPORT INFORMATION
  Report Type: Spontaneous
  Country: US (occurrence: US)
  Receive Date: 20240926
  Receipt Date: 20240926
  Transmission Date: 20241017
  Serious: No
  Sender: ASTELLAS
  Company Number: US-ASTELLAS-2024-AER-008229

PATIENT
  Sex: Male
  Weight: 88 kg

DRUGS (1)
  1. PADCEV [Suspect]
     Active Substance: ENFORTUMAB VEDOTIN-EJFV
     Indication: Product used for unknown indication
     Dosage: 0.7361 MG/KG (65 MG), EVERY 7 DAYS
     Route: 065

REACTIONS (2)
  - Off label use [Unknown]
  - Underdose [Unknown]
